FAERS Safety Report 15288255 (Version 2)
Quarter: 2018Q3

REPORT INFORMATION
  Report Type: Report from Study
  Country: None (occurrence: RO)
  Receive Date: 20180817
  Receipt Date: 20180824
  Transmission Date: 20181010
  Serious: Yes (Hospitalization)
  Sender: FDA-Public Use
  Company Number: RO-ABBVIE-18S-135-2450533-00

PATIENT
  Age: 47 Year
  Sex: Female

DRUGS (2)
  1. DUODOPA [Suspect]
     Active Substance: CARBIDOPA\LEVODOPA
     Indication: PARKINSON^S DISEASE
     Dosage: MD=3.00 CD=1.40 ED=1.20 NRED=1;
     Route: 050
     Dates: start: 20160915
  2. AZILECT [Concomitant]
     Active Substance: RASAGILINE MESYLATE
     Indication: PARKINSON^S DISEASE
     Route: 048

REACTIONS (8)
  - Contusion [Recovered/Resolved]
  - Cervicitis [Recovering/Resolving]
  - Stoma site hypergranulation [Recovering/Resolving]
  - Vaginal infection [Recovering/Resolving]
  - Balance disorder [Recovered/Resolved]
  - Constipation [Recovering/Resolving]
  - Fall [Recovered/Resolved]
  - Cyst [Not Recovered/Not Resolved]

NARRATIVE: CASE EVENT DATE: 20180807
